FAERS Safety Report 24791308 (Version 1)
Quarter: 2024Q4

REPORT INFORMATION
  Report Type: Report from Study
  Country: US (occurrence: US)
  Receive Date: 20241231
  Receipt Date: 20241231
  Transmission Date: 20250114
  Serious: Yes (Hospitalization)
  Sender: JOHNSON AND JOHNSON
  Company Number: US-ABBVIE-6026358

PATIENT
  Age: 4 Year
  Sex: Female
  Weight: 12 kg

DRUGS (3)
  1. IMBRUVICA [Suspect]
     Active Substance: IBRUTINIB
     Indication: Graft versus host disease
     Dosage: FORM STRENGTH: 70 MILLIGRAM
     Route: 048
     Dates: start: 202406
  2. IMBRUVICA [Suspect]
     Active Substance: IBRUTINIB
  3. SIROLIMUS [Concomitant]
     Active Substance: SIROLIMUS
     Indication: Graft versus host disease

REACTIONS (3)
  - Pneumatosis intestinalis [Recovered/Resolved]
  - Epistaxis [Unknown]
  - Platelet count decreased [Recovered/Resolved]

NARRATIVE: CASE EVENT DATE: 20240101
